APPROVED DRUG PRODUCT: GLYBURIDE (MICRONIZED)
Active Ingredient: GLYBURIDE
Strength: 1.5MG
Dosage Form/Route: TABLET;ORAL
Application: A074792 | Product #001
Applicant: NATCO PHARMA LTD
Approved: Jun 26, 1998 | RLD: No | RS: No | Type: DISCN